FAERS Safety Report 25141194 (Version 1)
Quarter: 2025Q1

REPORT INFORMATION
  Report Type: Spontaneous
  Country: US (occurrence: US)
  Receive Date: 20250331
  Receipt Date: 20250331
  Transmission Date: 20250408
  Serious: No
  Sender: GRIFOLS
  Company Number: US-IGSA-BIG0033548

PATIENT
  Age: 50 Year
  Sex: Female

DRUGS (2)
  1. GAMMAKED [Suspect]
     Active Substance: HUMAN IMMUNOGLOBULIN G
     Indication: Immune-mediated myositis
     Route: 042
     Dates: start: 20250223
  2. GAMMAKED [Suspect]
     Active Substance: HUMAN IMMUNOGLOBULIN G
     Indication: Off label use

REACTIONS (9)
  - Chest discomfort [Recovering/Resolving]
  - Eye pain [Recovering/Resolving]
  - Throat tightness [Recovering/Resolving]
  - Feeling abnormal [Recovering/Resolving]
  - Photophobia [Recovering/Resolving]
  - Asthenia [Recovering/Resolving]
  - Nervous system disorder [Recovering/Resolving]
  - Musculoskeletal stiffness [Recovering/Resolving]
  - Skin hypopigmentation [Recovering/Resolving]

NARRATIVE: CASE EVENT DATE: 20250223
